FAERS Safety Report 13629975 (Version 1)
Quarter: 2017Q2

REPORT INFORMATION
  Report Type: Spontaneous
  Country: US (occurrence: US)
  Receive Date: 20170531
  Receipt Date: 20170531
  Transmission Date: 20170830
  Serious: No
  Sender: FDA-Public Use
  Company Number: US-ASTELLAS-1264671

PATIENT
  Sex: Male

DRUGS (2)
  1. TARCEVA [Suspect]
     Active Substance: ERLOTINIB HYDROCHLORIDE
     Route: 048
  2. TARCEVA [Suspect]
     Active Substance: ERLOTINIB HYDROCHLORIDE
     Indication: NON-SMALL CELL LUNG CANCER STAGE IV
     Dosage: FREQUENCY-QD
     Route: 048

REACTIONS (3)
  - Rash [Not Recovered/Not Resolved]
  - Diarrhoea [Recovered/Resolved]
  - Acne [Unknown]
